FAERS Safety Report 4461599-2 (Version None)
Quarter: 2004Q3

REPORT INFORMATION
  Report Type: 
  Country: None (occurrence: None)
  Receive Date: 20040923
  Receipt Date: 20040906
  Transmission Date: 20050211
  Serious: Yes (Congenital Anomaly, Other)
  Sender: FDA-Public Use
  Company Number: 2004-DE-04696GD

PATIENT
  Sex: Female

DRUGS (4)
  1. NEVIRAPINE        (NEVIRAPINE) [Suspect]
     Dosage: IU
     Route: 015
  2. 3TC (LAMIVUDINE) [Suspect]
     Dosage: IU
     Route: 015
  3. D4T (STAVUDINE) [Suspect]
     Dosage: IU
     Route: 015
  4. ISONIAZID [Suspect]
     Dosage: IU
     Route: 015

REACTIONS (13)
  - ACIDOSIS [None]
  - CONGENITAL NOSE MALFORMATION [None]
  - DRUG EXPOSURE DURING PREGNANCY [None]
  - HYDRONEPHROSIS [None]
  - INGUINAL HERNIA [None]
  - KIDNEY ENLARGEMENT [None]
  - NEONATAL DISORDER [None]
  - NEONATAL RESPIRATORY FAILURE [None]
  - PNEUMOTHORAX [None]
  - PROCEDURAL COMPLICATION [None]
  - TOOTH DEVELOPMENT DISORDER [None]
  - URETERIC DILATATION [None]
  - VESICOURETERIC REFLUX [None]
